FAERS Safety Report 10950426 (Version 2)
Quarter: 2015Q1

REPORT INFORMATION
  Report Type: Spontaneous
  Country: JP (occurrence: JP)
  Receive Date: 20150324
  Receipt Date: 20150327
  Transmission Date: 20150721
  Serious: Yes (Death)
  Sender: FDA-Public Use
  Company Number: JP-PFIZER INC-2015083688

PATIENT
  Age: 8 Decade
  Sex: Female

DRUGS (1)
  1. SUTENT [Suspect]
     Active Substance: SUNITINIB MALATE
     Indication: RENAL CELL CARCINOMA
     Dosage: 37.5 MG, UNK
     Route: 048
     Dates: start: 20120808, end: 20130123

REACTIONS (3)
  - Disease progression [Fatal]
  - Lipase increased [Recovering/Resolving]
  - Renal cell carcinoma [Fatal]

NARRATIVE: CASE EVENT DATE: 20120912
